FAERS Safety Report 6839016-4 (Version None)
Quarter: 2010Q3

REPORT INFORMATION
  Report Type: 
  Country: None (occurrence: None)
  Receive Date: 20100713
  Receipt Date: 20080603
  Transmission Date: 20110219
  Serious: No
  Sender: FDA-Public Use
  Company Number: US-PFIZER INC-2007047960

PATIENT
  Sex: Female
  Weight: 54.43 kg

DRUGS (8)
  1. CHANTIX [Suspect]
     Indication: SMOKING CESSATION THERAPY
     Route: 048
     Dates: start: 20070528
  2. PREVACID [Concomitant]
  3. EVISTA [Concomitant]
  4. MIACALCIN [Concomitant]
     Route: 045
  5. ACETYLSALICYLIC ACID [Concomitant]
  6. CALCIUM [Concomitant]
  7. CELEXA [Concomitant]
  8. ANTIDEPRESSANTS [Concomitant]

REACTIONS (6)
  - DECREASED APPETITE [None]
  - ERYTHEMA [None]
  - LACRIMATION INCREASED [None]
  - NAUSEA [None]
  - RETCHING [None]
  - SOMNOLENCE [None]
